FAERS Safety Report 18342599 (Version 5)
Quarter: 2021Q2

REPORT INFORMATION
  Report Type: Report from Study
  Country: IL (occurrence: IL)
  Receive Date: 20201005
  Receipt Date: 20210615
  Transmission Date: 20210717
  Serious: Yes (Other)
  Sender: FDA-Public Use
  Company Number: IL-ABBVIE-19K-082-2879414-00

PATIENT
  Age: 51 Year
  Sex: Male
  Weight: 83 kg

DRUGS (32)
  1. VENETOCLAX. [Suspect]
     Active Substance: VENETOCLAX
     Dosage: DOSE INCREASE ACCORDING TO VENETOCLAX DOSE TITRATION SHCEME
     Route: 048
     Dates: start: 20190403, end: 20190409
  2. AHISTON [Concomitant]
     Active Substance: CHLORPHENIRAMINE MALEATE
     Dates: start: 20190527, end: 20190527
  3. AHISTON [Concomitant]
     Active Substance: CHLORPHENIRAMINE MALEATE
     Dates: start: 20190630, end: 20190630
  4. ACAMOL [Concomitant]
     Active Substance: ACETAMINOPHEN
     Dates: start: 20190728, end: 20190728
  5. SOLU?MEDROL [Concomitant]
     Active Substance: METHYLPREDNISOLONE SODIUM SUCCINATE
     Indication: PREMEDICATION
     Route: 065
     Dates: start: 20190501, end: 20190501
  6. RITUXIMAB. [Suspect]
     Active Substance: RITUXIMAB
     Dosage: CYCLE 2
     Route: 065
     Dates: start: 20190527, end: 20190527
  7. ALLORIL [Concomitant]
     Active Substance: ALLOPURINOL
     Indication: PROPHYLAXIS
     Route: 065
     Dates: start: 20190320, end: 20190728
  8. ACAMOL [Concomitant]
     Active Substance: ACETAMINOPHEN
     Dates: start: 20190928, end: 20190928
  9. SOLU?MEDROL [Concomitant]
     Active Substance: METHYLPREDNISOLONE SODIUM SUCCINATE
     Dates: start: 20190828, end: 20190828
  10. COVID?19 VACCINE [Concomitant]
     Route: 030
     Dates: start: 20210323, end: 20210323
  11. RITUXIMAB. [Suspect]
     Active Substance: RITUXIMAB
     Indication: CHRONIC LYMPHOCYTIC LEUKAEMIA
     Dosage: CYCLE 1
     Route: 065
     Dates: start: 20190501, end: 20190501
  12. RITUXIMAB. [Suspect]
     Active Substance: RITUXIMAB
     Dosage: CYCLE 3
     Route: 065
     Dates: start: 20190630, end: 20190630
  13. ACAMOL [Concomitant]
     Active Substance: ACETAMINOPHEN
     Indication: PREMEDICATION
     Route: 065
     Dates: start: 20190501, end: 20190501
  14. ACAMOL [Concomitant]
     Active Substance: ACETAMINOPHEN
     Dates: start: 20190527, end: 20190527
  15. SOLU?MEDROL [Concomitant]
     Active Substance: METHYLPREDNISOLONE SODIUM SUCCINATE
     Dates: start: 20190922, end: 20190922
  16. LORATADINE. [Concomitant]
     Active Substance: LORATADINE
     Indication: PREMEDICATION
     Dates: start: 20190728, end: 20190728
  17. LORATADINE. [Concomitant]
     Active Substance: LORATADINE
     Dates: start: 20190828, end: 20190828
  18. RITUXIMAB. [Suspect]
     Active Substance: RITUXIMAB
     Dosage: CYCLE 4
     Route: 065
     Dates: start: 20190728, end: 20190728
  19. SOLU?MEDROL [Concomitant]
     Active Substance: METHYLPREDNISOLONE SODIUM SUCCINATE
     Dates: start: 20190527, end: 20190527
  20. SOLU?MEDROL [Concomitant]
     Active Substance: METHYLPREDNISOLONE SODIUM SUCCINATE
     Dates: start: 20190630, end: 20190630
  21. VENETOCLAX. [Suspect]
     Active Substance: VENETOCLAX
     Indication: CHRONIC LYMPHOCYTIC LEUKAEMIA
     Dosage: DOSE INCREASE ACCORDING TO VENETOCLAX DOSE TITRATION SHCEME
     Route: 048
     Dates: start: 20190320, end: 20190326
  22. RITUXIMAB. [Suspect]
     Active Substance: RITUXIMAB
     Dosage: CYCLE 5
     Route: 065
     Dates: start: 20190828, end: 20190828
  23. ACAMOL [Concomitant]
     Active Substance: ACETAMINOPHEN
     Dates: start: 20190630, end: 20190630
  24. COVID?19 VACCINE [Concomitant]
     Indication: COVID-19 PROPHYLAXIS
     Route: 030
     Dates: start: 20210302, end: 20210302
  25. VENETOCLAX. [Suspect]
     Active Substance: VENETOCLAX
     Dosage: DOSE INCREASE ACCORDING TO VENETOCLAX DOSE TITRATION SHCEME
     Route: 048
     Dates: start: 20190327, end: 20190402
  26. AHISTON [Concomitant]
     Active Substance: CHLORPHENIRAMINE MALEATE
     Indication: PREMEDICATION
     Dates: start: 20190501, end: 20190501
  27. SOLU?MEDROL [Concomitant]
     Active Substance: METHYLPREDNISOLONE SODIUM SUCCINATE
     Dates: start: 20190728, end: 20190728
  28. LORATADINE. [Concomitant]
     Active Substance: LORATADINE
     Dates: start: 20190922, end: 20190922
  29. VENETOCLAX. [Suspect]
     Active Substance: VENETOCLAX
     Dosage: DOSE INCREASE ACCORDING TO VENETOCLAX DOSE TITRATION SHCEME
     Route: 048
     Dates: start: 20190410, end: 20190416
  30. VENETOCLAX. [Suspect]
     Active Substance: VENETOCLAX
     Dosage: DOSE INCREASE ACCORDING TO VENETOCLAX DOSE TITRATION SHCEME
     Route: 048
     Dates: start: 20190417
  31. RITUXIMAB. [Suspect]
     Active Substance: RITUXIMAB
     Dosage: CYCLE 6
     Route: 065
     Dates: start: 20190922, end: 20190922
  32. ACAMOL [Concomitant]
     Active Substance: ACETAMINOPHEN
     Dates: start: 20190828, end: 20190828

REACTIONS (15)
  - Fatigue [Not Recovered/Not Resolved]
  - Bone pain [Not Recovered/Not Resolved]
  - Pseudomonas infection [Not Recovered/Not Resolved]
  - Abdominal pain [Not Recovered/Not Resolved]
  - Productive cough [Recovered/Resolved]
  - Jaundice [Not Recovered/Not Resolved]
  - Abdominal pain [Recovered/Resolved]
  - Haemolytic anaemia [Not Recovered/Not Resolved]
  - Otitis externa candida [Not Recovered/Not Resolved]
  - Haemolysis [Not Recovered/Not Resolved]
  - Otitis externa [Not Recovered/Not Resolved]
  - Bone pain [Recovered/Resolved]
  - Parvovirus infection [Not Recovered/Not Resolved]
  - Fatigue [Recovered/Resolved]
  - Diarrhoea [Recovered/Resolved]

NARRATIVE: CASE EVENT DATE: 201903
